FAERS Safety Report 22091752 (Version 1)
Quarter: 2023Q1

REPORT INFORMATION
  Report Type: Report from Study
  Country: BR (occurrence: BR)
  Receive Date: 20230314
  Receipt Date: 20230314
  Transmission Date: 20230418
  Serious: Yes (Other)
  Sender: FDA-Public Use
  Company Number: BR-JNJFOC-20220414024

PATIENT
  Sex: Female

DRUGS (6)
  1. SIMPONI [Suspect]
     Active Substance: GOLIMUMAB
     Indication: Rheumatoid arthritis
     Route: 058
     Dates: start: 20150313
  2. SIMPONI [Suspect]
     Active Substance: GOLIMUMAB
     Route: 058
     Dates: start: 20150313
  3. METHOTREXATE [Concomitant]
     Active Substance: METHOTREXATE
  4. PREDNISONE [Concomitant]
     Active Substance: PREDNISONE
  5. MELOXICAM [Concomitant]
     Active Substance: MELOXICAM
  6. MORPHINE [Concomitant]
     Active Substance: MORPHINE

REACTIONS (6)
  - Rheumatoid arthritis [Recovering/Resolving]
  - Hypertension [Unknown]
  - Alopecia [Unknown]
  - Chronic sinusitis [Unknown]
  - Hypersensitivity [Unknown]
  - Wound [Unknown]

NARRATIVE: CASE EVENT DATE: 20210101
